FAERS Safety Report 21824170 (Version 1)
Quarter: 2023Q1

REPORT INFORMATION
  Report Type: Spontaneous
  Country: US (occurrence: None)
  Receive Date: 20230105
  Receipt Date: 20230105
  Transmission Date: 20230417
  Serious: Yes (Other)
  Sender: FDA-Public Use
  Company Number: 2022A420488

PATIENT
  Age: 56 Year
  Sex: Female

DRUGS (2)
  1. OSIMERTINIB [Suspect]
     Active Substance: OSIMERTINIB
     Indication: Small cell lung cancer
     Route: 048
  2. MIFEPRISTONE [Concomitant]
     Active Substance: MIFEPRISTONE
     Indication: Lung neoplasm malignant

REACTIONS (4)
  - Malignant neoplasm progression [Unknown]
  - EGFR gene mutation [Unknown]
  - Metastases to central nervous system [Unknown]
  - Drug ineffective [Unknown]
